FAERS Safety Report 7731894-X (Version None)
Quarter: 2011Q3

REPORT INFORMATION
  Report Type: 
  Country: None (occurrence: None)
  Receive Date: 20110906
  Receipt Date: 20110830
  Transmission Date: 20111222
  Serious: Yes (Death, Other)
  Sender: FDA-Public Use
  Company Number: JP-PFIZER INC-2011205706

PATIENT
  Sex: Male
  Weight: 56 kg

DRUGS (2)
  1. CELECOXIB [Suspect]
     Indication: RHEUMATOID ARTHRITIS
     Dosage: 200 MG, DAILY
     Route: 065
     Dates: start: 20080401, end: 20100112
  2. INDOMETACIN [Concomitant]

REACTIONS (1)
  - LUNG NEOPLASM MALIGNANT [None]
